FAERS Safety Report 10054323 (Version 2)
Quarter: 2014Q2

REPORT INFORMATION
  Report Type: Spontaneous
  Country: US (occurrence: US)
  Receive Date: 20140402
  Receipt Date: 20140402
  Transmission Date: 20141212
  Serious: No
  Sender: FDA-Public Use
  Company Number: US-AMGEN-USASP2014017493

PATIENT
  Age: 61 Year
  Sex: Female
  Weight: 48.98 kg

DRUGS (14)
  1. ENBREL [Suspect]
     Indication: PRODUCT USED FOR UNKNOWN INDICATION
     Dosage: 50 MG, QWK
     Route: 058
     Dates: start: 20140303
  2. TYLENOL W/CODEINE [Concomitant]
     Dosage: UNK
  3. DIFLUCAN [Concomitant]
     Dosage: 50 MG, UNK
  4. SYNTHROID [Concomitant]
     Dosage: 100 MUG, UNK
  5. SALINE                             /00075401/ [Concomitant]
     Dosage: 0.65 %, UNK
  6. ALBUTEROL                          /00139501/ [Concomitant]
     Dosage: 90 MUG, UNK
  7. METHOTREXATE [Concomitant]
     Dosage: 50 MG/2 ML
  8. FISH OIL [Concomitant]
     Dosage: UNK
  9. FOLIC ACID [Concomitant]
     Dosage: UNK
  10. ALORA                              /00045401/ [Concomitant]
     Dosage: 0.05 MG, UNK
  11. CYTOMEL [Concomitant]
     Dosage: 25 MUG, UNK
  12. PROBIOTIC                          /06395501/ [Concomitant]
     Dosage: UNK
  13. OMEPRAZOLE [Concomitant]
     Dosage: 40 MG, UNK
  14. ONDANSETRON [Concomitant]
     Dosage: 8 MG, UNK

REACTIONS (4)
  - Pyrexia [Recovered/Resolved]
  - Fatigue [Unknown]
  - Paranasal sinus hypersecretion [Unknown]
  - Sinus headache [Unknown]
